FAERS Safety Report 8536904-8 (Version None)
Quarter: 2012Q3

REPORT INFORMATION
  Report Type: 
  Country: None (occurrence: None)
  Receive Date: 20120725
  Receipt Date: 20120719
  Transmission Date: 20120928
  Serious: Yes (Other)
  Sender: FDA-Public Use
  Company Number: JP-PFIZER INC-2012175139

PATIENT
  Age: 85 Year
  Sex: Female

DRUGS (1)
  1. ZITHROMAX [Suspect]
     Indication: INFECTION
     Dosage: 2 G/DAY
     Route: 048
     Dates: start: 20120717

REACTIONS (1)
  - HYPOGLYCAEMIA [None]
